FAERS Safety Report 6230858-5 (Version None)
Quarter: 2009Q2

REPORT INFORMATION
  Report Type: 
  Country: None (occurrence: None)
  Receive Date: 20090616
  Receipt Date: 20090609
  Transmission Date: 20091009
  Serious: Yes (Other)
  Sender: FDA-Public Use
  Company Number: GB-JNJFOC-20090603227

PATIENT
  Sex: Female

DRUGS (5)
  1. RISPERDAL CONSTA [Suspect]
     Indication: SCHIZOPHRENIA
     Route: 030
  2. DIAZEPAM [Concomitant]
     Route: 065
  3. ZOLPIDEM TARTRATE [Concomitant]
     Route: 065
  4. ALL OTHER THERAPEUTIC PRODUCT [Concomitant]
     Route: 065
  5. TRAMADOL HCL [Concomitant]
     Route: 065

REACTIONS (2)
  - FACE OEDEMA [None]
  - OEDEMA PERIPHERAL [None]
